FAERS Safety Report 23105478 (Version 1)
Quarter: 2023Q4

REPORT INFORMATION
  Report Type: Report from Study
  Country: US (occurrence: US)
  Receive Date: 20231025
  Receipt Date: 20231025
  Transmission Date: 20240110
  Serious: No
  Sender: FDA-Public Use
  Company Number: US-002147023-NVSC2023US228811

PATIENT
  Age: 21 Year
  Sex: Female

DRUGS (1)
  1. COSENTYX [Suspect]
     Active Substance: SECUKINUMAB
     Indication: Product used for unknown indication
     Dosage: UNK (TWICE A WEEK)
     Route: 058
     Dates: start: 2021, end: 202202

REACTIONS (3)
  - Road traffic accident [Unknown]
  - Dry skin [Unknown]
  - Pain [Unknown]

NARRATIVE: CASE EVENT DATE: 20230801
